FAERS Safety Report 9098545 (Version 5)
Quarter: 2014Q2

REPORT INFORMATION
  Report Type: Spontaneous
  Country: CA (occurrence: CA)
  Receive Date: 20130213
  Receipt Date: 20140603
  Transmission Date: 20141212
  Serious: Yes (Death, Hospitalization)
  Sender: FDA-Public Use
  Company Number: CA-CELGENEUS-028-21880-12072929

PATIENT
  Age: 71 Year
  Sex: Female

DRUGS (65)
  1. REVLIMID [Suspect]
     Indication: PLASMA CELL MYELOMA
     Route: 048
     Dates: start: 20120704, end: 20120821
  2. DEXAMETHASONE [Suspect]
     Indication: PLASMA CELL MYELOMA
     Route: 048
     Dates: start: 20120704, end: 20120822
  3. DEXAMETHASONE [Suspect]
     Route: 048
     Dates: start: 20120704, end: 20120816
  4. DEXAMETHASONE [Suspect]
     Route: 048
     Dates: start: 20120704
  5. PACKED RED BLOOD CELLS [Concomitant]
     Indication: ADVERSE EVENT
     Dosage: 2 IU (INTERNATIONAL UNIT)
     Route: 041
     Dates: start: 20120714, end: 20120714
  6. METFORMIN [Concomitant]
     Indication: ADVERSE EVENT
     Route: 065
     Dates: start: 20120804, end: 20120805
  7. METFORMIN [Concomitant]
     Route: 065
     Dates: start: 20120808
  8. BRIMATOPROST OPTHALMIC [Concomitant]
     Indication: ADVERSE EVENT
     Route: 047
     Dates: start: 20120726, end: 20120805
  9. BRIMATOPROST OPTHALMIC [Concomitant]
     Route: 047
     Dates: start: 20121106, end: 20121126
  10. BRIMONIDINE [Concomitant]
     Indication: ADVERSE EVENT
     Route: 047
     Dates: start: 20120726, end: 20120805
  11. BRIMONIDINE [Concomitant]
     Route: 047
     Dates: start: 20121106, end: 20121126
  12. AMLODIPINE [Concomitant]
     Indication: ADVERSE EVENT
     Route: 065
     Dates: start: 20120726, end: 20120805
  13. AMLODIPINE [Concomitant]
     Route: 065
     Dates: start: 20121106, end: 20121220
  14. PHYTODIONE [Concomitant]
     Indication: ADVERSE EVENT
     Route: 065
     Dates: start: 20120726, end: 20120727
  15. PHYTODIONE [Concomitant]
     Route: 065
     Dates: start: 20121106, end: 20121121
  16. FLUCONAZOLE [Concomitant]
     Indication: ADVERSE EVENT
     Route: 065
     Dates: start: 20120726, end: 20120801
  17. DALTEPARIN [Concomitant]
     Indication: ADVERSE EVENT
     Route: 065
     Dates: start: 20120726, end: 20120805
  18. SODIUM CHLORIDE [Concomitant]
     Indication: ADVERSE EVENT
     Route: 065
     Dates: start: 20120726, end: 20120727
  19. SODIUM CHLORIDE [Concomitant]
     Route: 065
     Dates: start: 20120728, end: 20120803
  20. SODIUM CHLORIDE [Concomitant]
     Route: 065
     Dates: start: 20121106, end: 20121123
  21. INSULIN ASPART [Concomitant]
     Indication: ADVERSE EVENT
     Route: 065
     Dates: start: 20120726, end: 20120805
  22. INSULIN ASPART [Concomitant]
     Route: 065
     Dates: start: 20121225, end: 20121226
  23. DEXTROSE IN WATER [Concomitant]
     Indication: ADVERSE EVENT
     Dosage: 5 PERCENT
     Route: 065
     Dates: start: 20120727, end: 20120728
  24. DEXTROSE IN WATER [Concomitant]
     Dosage: 5 PERCENT
     Route: 065
     Dates: start: 20121106, end: 20121108
  25. DEXTROSE IN WATER [Concomitant]
     Dosage: 50 PERCENT
     Route: 065
     Dates: start: 20121120, end: 20121122
  26. CALCIUM CARBONATE [Concomitant]
     Indication: ADVERSE EVENT
     Route: 065
     Dates: start: 20120729, end: 20120805
  27. CALCIUM CARBONATE [Concomitant]
     Route: 065
     Dates: start: 20121122, end: 20121226
  28. MAGNESIUM SULFATE [Concomitant]
     Indication: ADVERSE EVENT
     Route: 065
     Dates: start: 20120729, end: 20120729
  29. MAGNESIUM SULFATE [Concomitant]
     Route: 065
     Dates: start: 20120802, end: 20120802
  30. CALCIUM GLUCONATE [Concomitant]
     Indication: ADVERSE EVENT
     Route: 065
     Dates: start: 20120729, end: 20120730
  31. PROCHLORPERAZINE [Concomitant]
     Indication: ADVERSE EVENT
     Route: 065
     Dates: start: 20120729, end: 20120802
  32. LEVOFLOXACIN [Concomitant]
     Indication: ADVERSE EVENT
     Route: 065
     Dates: start: 20120725, end: 20120802
  33. POTASSIUM CHLORIDE [Concomitant]
     Indication: ADVERSE EVENT
     Route: 065
     Dates: start: 20120801, end: 20120805
  34. POTASSIUM CHLORIDE [Concomitant]
     Route: 065
     Dates: start: 20121110, end: 20121126
  35. ALTEPLASE [Concomitant]
     Indication: ADVERSE EVENT
     Route: 065
     Dates: start: 20120801, end: 20120801
  36. ALTEPLASE [Concomitant]
     Route: 065
     Dates: start: 20121112, end: 20121129
  37. ONDANSETRON [Concomitant]
     Indication: ADVERSE EVENT
     Route: 065
     Dates: start: 20120726, end: 20120802
  38. ASA [Concomitant]
     Indication: PRODUCT USED FOR UNKNOWN INDICATION
     Route: 065
     Dates: start: 20120704
  39. DOMPERIDONE [Concomitant]
     Indication: ADVERSE EVENT
     Route: 065
     Dates: start: 20120808
  40. PAMIDRONATE [Concomitant]
     Indication: PRODUCT USED FOR UNKNOWN INDICATION
     Route: 065
     Dates: start: 20100415
  41. TYLENOL ES [Concomitant]
     Indication: PRODUCT USED FOR UNKNOWN INDICATION
     Route: 065
     Dates: start: 2002
  42. FUROSEMIDE [Concomitant]
     Indication: PRODUCT USED FOR UNKNOWN INDICATION
     Route: 065
     Dates: start: 20121106, end: 20121114
  43. FUROSEMIDE [Concomitant]
     Route: 065
     Dates: start: 20121123, end: 20121127
  44. IPRATROPIUM [Concomitant]
     Indication: PRODUCT USED FOR UNKNOWN INDICATION
     Route: 065
     Dates: start: 20121106, end: 20121119
  45. SALBUTAMOL [Concomitant]
     Indication: PRODUCT USED FOR UNKNOWN INDICATION
     Route: 065
     Dates: start: 20121106, end: 20121119
  46. SODIUM POLYSTYRENE SULFONATE [Concomitant]
     Indication: PRODUCT USED FOR UNKNOWN INDICATION
     Route: 065
     Dates: start: 20121107, end: 20121107
  47. LACTULOSE [Concomitant]
     Indication: PRODUCT USED FOR UNKNOWN INDICATION
     Route: 065
     Dates: start: 20121107, end: 20121108
  48. LACTULOSE [Concomitant]
     Route: 065
     Dates: start: 20121126, end: 20121226
  49. CEFTAZIDIME [Concomitant]
     Indication: PRODUCT USED FOR UNKNOWN INDICATION
     Route: 065
     Dates: start: 20121107, end: 20121108
  50. PIPERACILLIN-TAZOBACTAM [Concomitant]
     Indication: PRODUCT USED FOR UNKNOWN INDICATION
     Route: 065
     Dates: start: 20121108, end: 20121115
  51. PIPERACILLIN-TAZOBACTAM [Concomitant]
     Route: 065
     Dates: start: 20121127, end: 20121130
  52. PIPERACILLIN-TAZOBACTAM [Concomitant]
     Route: 065
     Dates: start: 20121203, end: 20121220
  53. VANCOMYCIN [Concomitant]
     Indication: PRODUCT USED FOR UNKNOWN INDICATION
     Route: 065
     Dates: start: 20121113, end: 20121118
  54. VANCOMYCIN [Concomitant]
     Route: 065
     Dates: start: 20121214, end: 20121220
  55. CHLORHEXIDINE GLUCONATE [Concomitant]
     Indication: PRODUCT USED FOR UNKNOWN INDICATION
     Route: 061
     Dates: start: 20121118, end: 20121123
  56. HEPARIN [Concomitant]
     Indication: PRODUCT USED FOR UNKNOWN INDICATION
     Route: 065
     Dates: start: 20121119, end: 20121226
  57. METOLAZONE [Concomitant]
     Indication: PRODUCT USED FOR UNKNOWN INDICATION
     Route: 065
     Dates: start: 20121119, end: 20121127
  58. LANSOPRAZOLE [Concomitant]
     Indication: PRODUCT USED FOR UNKNOWN INDICATION
     Route: 065
     Dates: start: 20121119, end: 20121226
  59. NITRO [Concomitant]
     Indication: PRODUCT USED FOR UNKNOWN INDICATION
     Route: 065
     Dates: start: 20121122, end: 20121128
  60. CEFTRIAXONE [Concomitant]
     Indication: PRODUCT USED FOR UNKNOWN INDICATION
     Route: 065
     Dates: start: 20121130, end: 20121206
  61. EPOETIN ALPHA [Concomitant]
     Indication: PRODUCT USED FOR UNKNOWN INDICATION
     Route: 065
     Dates: start: 20121205, end: 20121210
  62. MULTIVITAMINS [Concomitant]
     Indication: PRODUCT USED FOR UNKNOWN INDICATION
     Route: 065
     Dates: start: 20121205, end: 20121226
  63. CYCLOPHOSPHAMIDE [Concomitant]
     Indication: PRODUCT USED FOR UNKNOWN INDICATION
     Route: 065
     Dates: start: 20121207, end: 20121207
  64. HYDROMORPHONE [Concomitant]
     Indication: PRODUCT USED FOR UNKNOWN INDICATION
     Route: 065
     Dates: start: 20121226, end: 20121226
  65. INSULIN [Concomitant]
     Indication: PRODUCT USED FOR UNKNOWN INDICATION
     Route: 065
     Dates: start: 20121106, end: 20121225

REACTIONS (4)
  - Renal failure acute [Fatal]
  - Vomiting [Recovered/Resolved]
  - Renal failure acute [Recovered/Resolved]
  - Anaemia [Not Recovered/Not Resolved]
